FAERS Safety Report 7610045-6 (Version None)
Quarter: 2011Q3

REPORT INFORMATION
  Report Type: 
  Country: None (occurrence: None)
  Receive Date: 20110715
  Receipt Date: 20110711
  Transmission Date: 20111222
  Serious: Yes (Life-Threatening, Other)
  Sender: FDA-Public Use
  Company Number: CA-SP-2011-04544

PATIENT
  Age: 30 Year
  Sex: Female

DRUGS (2)
  1. TUBERSOL [Suspect]
     Indication: TUBERCULIN TEST
     Dosage: 5.0 UNITS
     Route: 058
  2. MOXIFLOXACIN [Concomitant]
     Route: 065

REACTIONS (6)
  - SWOLLEN TONGUE [None]
  - PRURITUS [None]
  - INCORRECT ROUTE OF DRUG ADMINISTRATION [None]
  - SWELLING FACE [None]
  - URTICARIA [None]
  - OEDEMA PERIPHERAL [None]
